FAERS Safety Report 5825070-5 (Version None)
Quarter: 2008Q3

REPORT INFORMATION
  Report Type: 
  Country: None (occurrence: None)
  Receive Date: 20080729
  Receipt Date: 20080728
  Transmission Date: 20090109
  Serious: Yes (Other)
  Sender: FDA-Public Use
  Company Number: US-BRISTOL-MYERS SQUIBB COMPANY-14262364

PATIENT
  Age: 55 Year
  Sex: Male

DRUGS (6)
  1. ORENCIA [Suspect]
     Indication: RHEUMATOID ARTHRITIS
     Dosage: 06MAY,20MAY,04JUN08.
     Route: 042
     Dates: start: 20080506, end: 20080604
  2. METHOTREXATE [Concomitant]
  3. METOPROLOL TARTRATE [Concomitant]
  4. LANSOPRAZOLE [Concomitant]
  5. PREDNISOLONE [Concomitant]
  6. SULINDAC [Concomitant]

REACTIONS (1)
  - THROMBOCYTOPENIA [None]
